FAERS Safety Report 5442172-6 (Version None)
Quarter: 2007Q3

REPORT INFORMATION
  Report Type: 
  Country: None (occurrence: None)
  Receive Date: 20070904
  Receipt Date: 20070821
  Transmission Date: 20080115
  Serious: Yes (Disabling, Other)
  Sender: FDA-Public Use
  Company Number: US-ELI_LILLY_AND_COMPANY-US200708004423

PATIENT
  Age: 62 Year
  Sex: Female

DRUGS (1)
  1. FORTEO [Suspect]
     Indication: LOWER LIMB FRACTURE
     Dates: start: 20050401, end: 20070401

REACTIONS (7)
  - DEAFNESS [None]
  - MUSCULOSKELETAL DISCOMFORT [None]
  - OSTEITIS DEFORMANS [None]
  - PAIN IN EXTREMITY [None]
  - SPINAL COLUMN STENOSIS [None]
  - SPINAL COMPRESSION FRACTURE [None]
  - VIIITH NERVE LESION [None]
